FAERS Safety Report 9423597 (Version 1)
Quarter: 2013Q3

REPORT INFORMATION
  Report Type: Spontaneous
  Country: RU (occurrence: RU)
  Receive Date: 20130726
  Receipt Date: 20130726
  Transmission Date: 20140515
  Serious: Yes (Death)
  Sender: FDA-Public Use
  Company Number: RU-ASTRAZENECA-2013SE56102

PATIENT
  Age: 78 Year
  Sex: Male
  Weight: 93 kg

DRUGS (4)
  1. BRILINTA [Suspect]
     Indication: ACUTE CORONARY SYNDROME
     Route: 048
     Dates: start: 20130625, end: 20130625
  2. ASPIRIN [Concomitant]
     Route: 048
     Dates: start: 20130625
  3. CLEXANE [Concomitant]
     Route: 048
     Dates: start: 20130625
  4. STREPTOKINASE [Concomitant]
     Dates: start: 20130625

REACTIONS (4)
  - Rectal haemorrhage [Fatal]
  - Gingival bleeding [Fatal]
  - Acute myocardial infarction [Fatal]
  - Cardiogenic shock [Fatal]
